FAERS Safety Report 9947151 (Version 1)
Quarter: 2014Q1

REPORT INFORMATION
  Report Type: Report from Study
  Country: US (occurrence: US)
  Receive Date: 20140303
  Receipt Date: 20140303
  Transmission Date: 20141002
  Serious: No
  Sender: FDA-Public Use
  Company Number: US-ABBVIE-13P-163-1059739-00

PATIENT
  Age: 50 Year
  Sex: Female

DRUGS (3)
  1. HUMIRA [Suspect]
     Indication: CROHN^S DISEASE
     Dates: start: 20120905
  2. NASCOBAL [Concomitant]
     Indication: VITAMIN B12 DEFICIENCY
  3. LO LOESTRIN [Concomitant]
     Indication: CONTRACEPTION
     Dosage: PILL

REACTIONS (2)
  - Oral mucosal discolouration [Not Recovered/Not Resolved]
  - Dry mouth [Not Recovered/Not Resolved]
